FAERS Safety Report 18100561 (Version 1)
Quarter: 2020Q3

REPORT INFORMATION
  Report Type: Other
  Country: FR (occurrence: FR)
  Receive Date: 20200731
  Receipt Date: 20200731
  Transmission Date: 20201103
  Serious: Yes (Hospitalization)
  Sender: FDA-Public Use
  Company Number: FR-GE HEALTHCARE LIFE SCIENCES-2020CSU003261

PATIENT

DRUGS (2)
  1. OMNIPAQUE [Suspect]
     Active Substance: IOHEXOL
     Indication: PRODUCT USED FOR UNKNOWN INDICATION
  2. OMNIPAQUE [Suspect]
     Active Substance: IOHEXOL
     Indication: COMPUTERISED TOMOGRAM HEAD
     Dosage: 90 ML, SINGLE
     Route: 042
     Dates: start: 20200613, end: 20200613

REACTIONS (2)
  - Infusion site extravasation [Recovered/Resolved with Sequelae]
  - Fasciectomy [Recovered/Resolved with Sequelae]

NARRATIVE: CASE EVENT DATE: 20200613
